FAERS Safety Report 5291235-7 (Version None)
Quarter: 2007Q2

REPORT INFORMATION
  Report Type: 
  Country: None (occurrence: None)
  Receive Date: 20070402
  Receipt Date: 20070322
  Transmission Date: 20071010
  Serious: Yes (Life-Threatening, Hospitalization)
  Sender: FDA-Public Use
  Company Number: 2007R1-06533

PATIENT
  Age: 53 Year
  Sex: Male
  Weight: 55 kg

DRUGS (2)
  1. NITROFURANTOIN [Suspect]
     Indication: URINARY TRACT INFECTION
     Dosage: SEE IMAGE
     Route: 048
     Dates: start: 20070220, end: 20070226
  2. NITROFURANTOIN [Suspect]
     Indication: URINARY TRACT INFECTION
     Dosage: SEE IMAGE
     Route: 048
     Dates: start: 20070227, end: 20070306

REACTIONS (4)
  - CANDIDIASIS [None]
  - DYSPEPSIA [None]
  - LEUKOPENIA [None]
  - PYREXIA [None]
